FAERS Safety Report 7208519-5 (Version None)
Quarter: 2011Q1

REPORT INFORMATION
  Report Type: 
  Country: None (occurrence: None)
  Receive Date: 20110104
  Receipt Date: 20101130
  Transmission Date: 20110831
  Serious: Yes (Life-Threatening, Hospitalization, Other)
  Sender: FDA-Public Use
  Company Number: US-BAYER-201025498NA

PATIENT
  Sex: Female
  Weight: 50 kg

DRUGS (10)
  1. ZYRTEC [Concomitant]
     Indication: PRODUCT USED FOR UNKNOWN INDICATION
  2. BENADRYL [Concomitant]
     Indication: SUICIDE ATTEMPT
  3. ACETAMINOPHEN [Concomitant]
     Indication: SUICIDE ATTEMPT
     Dosage: UNK
     Dates: start: 20091214
  4. SUDAFED 12 HOUR [Concomitant]
     Indication: SUICIDE ATTEMPT
  5. NYQUIL [Concomitant]
     Indication: SUICIDE ATTEMPT
     Dosage: 10 TABLETS
     Dates: start: 20091214
  6. YAZ [Suspect]
     Dosage: UNK
     Route: 048
     Dates: start: 20091101, end: 20091201
  7. YAZ [Suspect]
     Indication: DYSMENORRHOEA
     Dosage: UNK
     Route: 048
     Dates: start: 20070901, end: 20080801
  8. NYQUIL [Concomitant]
     Dosage: 9 TABLETS
     Dates: start: 20091126
  9. YAZ [Suspect]
     Route: 048
     Dates: start: 20090101, end: 20090401
  10. BENADRYL [Concomitant]
     Indication: PRODUCT USED FOR UNKNOWN INDICATION

REACTIONS (14)
  - SUICIDE ATTEMPT [None]
  - ABNORMAL BEHAVIOUR [None]
  - PARANOIA [None]
  - ANXIETY [None]
  - AGGRESSION [None]
  - SUICIDAL IDEATION [None]
  - TEARFULNESS [None]
  - STRESS [None]
  - ABDOMINAL PAIN [None]
  - DEPRESSION SUICIDAL [None]
  - HEADACHE [None]
  - WEIGHT DECREASED [None]
  - GALLBLADDER NON-FUNCTIONING [None]
  - NAUSEA [None]
